FAERS Safety Report 25582332 (Version 1)
Quarter: 2025Q3

REPORT INFORMATION
  Report Type: Report from Study
  Country: US (occurrence: US)
  Receive Date: 20250720
  Receipt Date: 20250720
  Transmission Date: 20251021
  Serious: Yes (Other)
  Sender: AUROBINDO
  Company Number: US-AUROBINDO-AUR-APL-2025-036387

PATIENT
  Age: 65 Year
  Sex: Male

DRUGS (7)
  1. DEXAMETHASONE [Suspect]
     Active Substance: DEXAMETHASONE
     Indication: Myelopathy
     Route: 065
  2. NELARABINE [Concomitant]
     Active Substance: NELARABINE
     Indication: Salvage therapy
     Route: 065
     Dates: start: 202108
  3. FLUDARABINE [Concomitant]
     Active Substance: FLUDARABINE PHOSPHATE
     Indication: Salvage therapy
     Route: 065
     Dates: start: 202106
  4. IDARUBICIN [Concomitant]
     Active Substance: IDARUBICIN
     Indication: Salvage therapy
     Route: 065
     Dates: start: 202106
  5. CYTARABINE [Concomitant]
     Active Substance: CYTARABINE
     Indication: Salvage therapy
     Route: 065
     Dates: start: 202106
  6. PEGASPARGASE [Concomitant]
     Active Substance: PEGASPARGASE
     Indication: Salvage therapy
     Route: 065
     Dates: start: 202106
  7. VENETOCLAX [Concomitant]
     Active Substance: VENETOCLAX
     Indication: Salvage therapy
     Route: 065
     Dates: start: 202106

REACTIONS (1)
  - Drug ineffective [Unknown]
